FAERS Safety Report 8346542-8 (Version None)
Quarter: 2012Q2

REPORT INFORMATION
  Report Type: 
  Country: None (occurrence: None)
  Receive Date: 20120509
  Receipt Date: 20120425
  Transmission Date: 20120825
  Serious: Yes (Hospitalization, Other)
  Sender: FDA-Public Use
  Company Number: PHHY2012JP029344

PATIENT
  Age: 50 Year
  Sex: Male

DRUGS (3)
  1. NEORAL [Suspect]
     Indication: ALLOGENIC BONE MARROW TRANSPLANTATION THERAPY
     Dosage: 200 MG, DAILY
     Route: 048
  2. PREDNISOLONE [Concomitant]
     Dosage: 1 MG/KG, UNK
  3. SANDIMMUNE [Suspect]
     Indication: ALLOGENIC BONE MARROW TRANSPLANTATION THERAPY
     Dosage: 4 MG/KG, DAILY
     Route: 041

REACTIONS (15)
  - NERVE CONDUCTION STUDIES ABNORMAL [None]
  - PYREXIA [None]
  - DYSPNOEA [None]
  - NEUROPATHY PERIPHERAL [None]
  - AREFLEXIA [None]
  - MUSCULAR WEAKNESS [None]
  - GUILLAIN-BARRE SYNDROME [None]
  - CYTOMEGALOVIRUS INFECTION [None]
  - DYSPHONIA [None]
  - ACUTE GRAFT VERSUS HOST DISEASE [None]
  - DIARRHOEA [None]
  - DYSPHAGIA [None]
  - SENSORY DISTURBANCE [None]
  - PARALYSIS [None]
  - ERYTHEMA MULTIFORME [None]
